FAERS Safety Report 8184152-6 (Version None)
Quarter: 2012Q1

REPORT INFORMATION
  Report Type: 
  Country: None (occurrence: None)
  Receive Date: 20120305
  Receipt Date: 20110603
  Transmission Date: 20120608
  Serious: No
  Sender: FDA-Public Use
  Company Number: US-ABBOTT-11P-163-0730993-00

PATIENT
  Age: 47 Year
  Sex: Female
  Weight: 65.83 kg

DRUGS (1)
  1. BIAXIN XL [Suspect]
     Indication: STAPHYLOCOCCAL INFECTION
     Route: 048
     Dates: start: 20110217

REACTIONS (1)
  - RASH PAPULAR [None]
